FAERS Safety Report 8321625-7 (Version None)
Quarter: 2012Q2

REPORT INFORMATION
  Report Type: 
  Country: None (occurrence: None)
  Receive Date: 20120430
  Receipt Date: 20100621
  Transmission Date: 20120825
  Serious: No
  Sender: FDA-Public Use
  Company Number: US-TEVA-2009011771

PATIENT
  Sex: Male
  Weight: 100.79 kg

DRUGS (12)
  1. NUVIGIL [Suspect]
     Indication: NEUROLOGICAL SYMPTOM
  2. COUMADIN [Concomitant]
     Route: 048
     Dates: start: 19980101
  3. CONCERTA [Concomitant]
     Dates: start: 20040101
  4. FINASTERIDE [Concomitant]
     Indication: BENIGN PROSTATIC HYPERPLASIA
     Dates: start: 20080101
  5. ALLOPURINOL [Concomitant]
     Dates: start: 19800101
  6. LASIX [Concomitant]
     Indication: CARDIAC FAILURE CONGESTIVE
     Dates: start: 20000101
  7. LIPITOR [Concomitant]
     Indication: BLOOD CHOLESTEROL INCREASED
     Dates: start: 20040101
  8. SPIRONOLACTONE [Concomitant]
     Dates: start: 20100401
  9. LOSARTAN POTASSIUM [Concomitant]
     Dates: start: 20090101
  10. NUVIGIL [Suspect]
     Indication: SLEEP APNOEA SYNDROME
     Route: 048
     Dates: start: 20090701, end: 20090901
  11. COUMADIN [Concomitant]
     Route: 048
     Dates: start: 19980101
  12. FLUOXETINE [Concomitant]
     Indication: DEPRESSION
     Dates: start: 20000101

REACTIONS (1)
  - INTERNATIONAL NORMALISED RATIO INCREASED [None]
